FAERS Safety Report 20150480 (Version 1)
Quarter: 2021Q4

REPORT INFORMATION
  Report Type: Spontaneous
  Country: GB (occurrence: GB)
  Receive Date: 20211206
  Receipt Date: 20211206
  Transmission Date: 20220303
  Serious: Yes (Other)
  Sender: FDA-Public Use
  Company Number: GB-002147023-NVSC2021GB217878

PATIENT
  Sex: Male

DRUGS (1)
  1. LACTULOSE [Suspect]
     Active Substance: LACTULOSE
     Indication: Product used for unknown indication
     Dosage: UNK
     Route: 065

REACTIONS (5)
  - Abdominal discomfort [Recovered/Resolved]
  - Hernia [Unknown]
  - Palpitations [Recovered/Resolved]
  - Ventricular extrasystoles [Unknown]
  - Gastrocardiac syndrome [Unknown]

NARRATIVE: CASE EVENT DATE: 20170101
